FAERS Safety Report 7285657-2 (Version None)
Quarter: 2011Q1

REPORT INFORMATION
  Report Type: 
  Country: None (occurrence: None)
  Receive Date: 20110210
  Receipt Date: 20110204
  Transmission Date: 20110831
  Serious: Yes (Congenital Anomaly)
  Sender: FDA-Public Use
  Company Number: A0912547A

PATIENT
  Sex: Male

DRUGS (4)
  1. ALBUTEROL [Concomitant]
     Indication: ASTHMA
     Route: 064
  2. ADVAIR [Concomitant]
     Indication: ASTHMA
     Route: 064
  3. PAXIL CR [Suspect]
     Route: 064
     Dates: start: 20080121, end: 20080423
  4. PAROXETINE HYDROCHLORIDE [Suspect]
     Route: 064
     Dates: start: 20080605, end: 20090310

REACTIONS (4)
  - PULMONARY VALVE STENOSIS CONGENITAL [None]
  - CARDIAC MURMUR [None]
  - ATRIAL SEPTAL DEFECT [None]
  - DRUG EXPOSURE DURING PREGNANCY [None]
